FAERS Safety Report 20977902 (Version 3)
Quarter: 2022Q3

REPORT INFORMATION
  Report Type: Spontaneous
  Country: TW (occurrence: TW)
  Receive Date: 20220618
  Receipt Date: 20220808
  Transmission Date: 20221027
  Serious: Yes (Death, Life-Threatening, Hospitalization, Other)
  Sender: FDA-Public Use
  Company Number: TW-BRISTOL-MYERS SQUIBB COMPANY-2022-059036

PATIENT
  Age: 47 Year
  Sex: Male
  Weight: 59 kg

DRUGS (1)
  1. OPDIVO [Suspect]
     Active Substance: NIVOLUMAB
     Indication: Oesophageal carcinoma
     Route: 042
     Dates: start: 20220110, end: 20220315

REACTIONS (19)
  - Respiratory failure [Fatal]
  - Oesophageal carcinoma [Fatal]
  - Septic shock [Unknown]
  - Pleural effusion [Unknown]
  - Hypokalaemia [Unknown]
  - Hyperkalaemia [Unknown]
  - Traumatic haemothorax [Unknown]
  - Supraventricular tachycardia [Unknown]
  - Hyponatraemia [Unknown]
  - Pain [Unknown]
  - Productive cough [Unknown]
  - Hyperglycaemia [Unknown]
  - Constipation [Unknown]
  - Insomnia [Unknown]
  - Brain natriuretic peptide increased [Unknown]
  - Diarrhoea [Unknown]
  - Heart rate abnormal [Unknown]
  - Benign prostatic hyperplasia [Unknown]
  - Urine output decreased [Unknown]

NARRATIVE: CASE EVENT DATE: 20220414
